FAERS Safety Report 8383029-0 (Version None)
Quarter: 2012Q2

REPORT INFORMATION
  Report Type: 
  Country: None (occurrence: None)
  Receive Date: 20120524
  Receipt Date: 20120518
  Transmission Date: 20120825
  Serious: Yes (Other)
  Sender: FDA-Public Use
  Company Number: US-FRI-1000030608

PATIENT
  Sex: Female

DRUGS (2)
  1. VIIBRYD [Suspect]
     Dosage: 10 MG
     Route: 048
  2. VIIBRYD [Suspect]
     Dosage: 20 MG
     Route: 048

REACTIONS (4)
  - DIZZINESS [None]
  - CRYING [None]
  - BLOOD PRESSURE INCREASED [None]
  - FEELING ABNORMAL [None]
